FAERS Safety Report 6555983-0 (Version None)
Quarter: 2010Q1

REPORT INFORMATION
  Report Type: 
  Country: None (occurrence: None)
  Receive Date: 20100128
  Receipt Date: 20090128
  Transmission Date: 20100710
  Serious: Yes (Other)
  Sender: FDA-Public Use
  Company Number: US-TEVA-181860USA

PATIENT
  Sex: Male
  Weight: 99.88 kg

DRUGS (2)
  1. COPAXONE [Suspect]
     Indication: RELAPSING-REMITTING MULTIPLE SCLEROSIS
     Route: 058
     Dates: start: 20080201, end: 20081127
  2. PSYCHIATRIC MEDICATION [Concomitant]
     Indication: BIPOLAR DISORDER

REACTIONS (1)
  - THROMBOPHLEBITIS [None]
